FAERS Safety Report 4606853-6 (Version None)
Quarter: 2005Q1

REPORT INFORMATION
  Report Type: 
  Country: None (occurrence: None)
  Receive Date: 20050314
  Receipt Date: 20050303
  Transmission Date: 20050727
  Serious: Yes (Other)
  Sender: FDA-Public Use
  Company Number: 200512178GDDC

PATIENT
  Age: 59 Year
  Sex: Male

DRUGS (6)
  1. MINIRIN [Suspect]
     Indication: CYSTITIS INTERSTITIAL
     Route: 048
     Dates: start: 20050201, end: 20050215
  2. BUDESONIDE [Concomitant]
     Indication: ASTHMA
     Route: 055
  3. BUDESONIDE [Concomitant]
     Indication: RHINITIS ALLERGIC
     Route: 055
  4. TERBUTALINE SULFATE [Concomitant]
     Indication: ASTHMA
     Route: 055
  5. PANACOD [Concomitant]
     Indication: BACK PAIN
     Route: 048
  6. TAMSULOSIN HYDROCHLORIDE [Concomitant]
     Indication: CYSTITIS INTERSTITIAL
     Route: 048

REACTIONS (5)
  - DYSPNOEA [None]
  - OEDEMA MOUTH [None]
  - OEDEMA MUCOSAL [None]
  - SWELLING FACE [None]
  - SWOLLEN TONGUE [None]
